FAERS Safety Report 5591756-3 (Version None)
Quarter: 2008Q1

REPORT INFORMATION
  Report Type: 
  Country: None (occurrence: None)
  Receive Date: 20080115
  Receipt Date: 20080111
  Transmission Date: 20080703
  Serious: Yes (Other)
  Sender: FDA-Public Use
  Company Number: A0702768A

PATIENT
  Age: 46 Year
  Sex: Female

DRUGS (4)
  1. VALTREX [Suspect]
     Indication: ANTIVIRAL PROPHYLAXIS
     Dosage: 500MG PER DAY
     Route: 048
  2. CHANTIX [Concomitant]
  3. VITAMINS [Concomitant]
  4. TPN [Concomitant]

REACTIONS (2)
  - MACROCYTOSIS [None]
  - NEUTROPHIL TOXIC GRANULATION PRESENT [None]
